FAERS Safety Report 19867728 (Version 9)
Quarter: 2023Q4

REPORT INFORMATION
  Report Type: Report from Study
  Country: US (occurrence: US)
  Receive Date: 20210921
  Receipt Date: 20231026
  Transmission Date: 20240110
  Serious: Yes (Other)
  Sender: FDA-Public Use
  Company Number: US-NOVARTISTESTPH-NVSC2021US212221

PATIENT
  Age: 8 Year
  Sex: Female

DRUGS (6)
  1. ILARIS [Suspect]
     Active Substance: CANAKINUMAB
     Indication: Familial amyloidosis
     Dosage: 150 MG, Q4W
     Route: 058
     Dates: start: 20170316
  2. ILARIS [Suspect]
     Active Substance: CANAKINUMAB
     Indication: Cryopyrin associated periodic syndrome
     Dosage: 150 MG, OTHER EVERY 4 WEEKS
     Route: 058
     Dates: start: 2018
  3. ILARIS [Suspect]
     Active Substance: CANAKINUMAB
     Dosage: 150 MG, OTHER EVERY 4 WEEKS
     Route: 058
     Dates: start: 201910
  4. ILARIS [Suspect]
     Active Substance: CANAKINUMAB
     Dosage: 150 MG, OTHER EVERY 4 WEEKS
     Route: 058
     Dates: start: 20191017
  5. ILARIS [Suspect]
     Active Substance: CANAKINUMAB
     Dosage: 150 MG, Q4W
     Route: 058
     Dates: start: 20200211
  6. PREDNISONE [Concomitant]
     Active Substance: PREDNISONE
     Indication: Product used for unknown indication
     Dosage: UNK
     Route: 065

REACTIONS (11)
  - Lyme disease [Unknown]
  - Malaise [Recovered/Resolved]
  - Ear pain [Recovered/Resolved]
  - Influenza [Unknown]
  - Pharyngitis [Unknown]
  - COVID-19 [Unknown]
  - Pyrexia [Unknown]
  - Product use in unapproved indication [Unknown]
  - Neuralgia [Unknown]
  - Rash [Unknown]
  - Migraine [Unknown]

NARRATIVE: CASE EVENT DATE: 20210201
